FAERS Safety Report 4793887-4 (Version None)
Quarter: 2005Q4

REPORT INFORMATION
  Report Type: 
  Country: None (occurrence: None)
  Receive Date: 20051007
  Receipt Date: 20051007
  Transmission Date: 20060501
  Serious: Yes (Hospitalization, Other)
  Sender: FDA-Public Use
  Company Number: None

PATIENT
  Sex: Female
  Weight: 50 kg

DRUGS (3)
  1. DOXORUBICIN HCL [Suspect]
     Indication: BREAST CANCER
     Dosage: SEE IMAGE
     Dates: start: 20050831
  2. CYTOXAN [Suspect]
     Dosage: SEE IMAGE
     Dates: start: 20050831
  3. DOCETAXEL [Suspect]
     Dosage: SEE IMAGE
     Dates: start: 20050831

REACTIONS (6)
  - BALANCE DISORDER [None]
  - BLOOD PRESSURE DECREASED [None]
  - DIARRHOEA [None]
  - FATIGUE [None]
  - NEUTROPENIA [None]
  - ORAL INTAKE REDUCED [None]
